FAERS Safety Report 4444481-6 (Version None)
Quarter: 2004Q3

REPORT INFORMATION
  Report Type: 
  Country: None (occurrence: None)
  Receive Date: 20040902
  Receipt Date: 20040823
  Transmission Date: 20050211
  Serious: Yes (Hospitalization, Other)
  Sender: FDA-Public Use
  Company Number: MESA00204002426

PATIENT
  Age: 31 Year
  Sex: Female
  Weight: 70.3075 kg

DRUGS (4)
  1. ROWASA [Suspect]
     Indication: CROHN'S DISEASE
     Dosage: DAILY RC, 4 MG PRN RC
     Dates: start: 20040715, end: 20040720
  2. ROWASA [Suspect]
     Indication: CROHN'S DISEASE
     Dosage: DAILY RC, 4 MG PRN RC
     Dates: start: 20040721
  3. ASACOL [Concomitant]
  4. PREDNISONE [Concomitant]

REACTIONS (3)
  - COAGULOPATHY [None]
  - DEEP VEIN THROMBOSIS [None]
  - DRUG EXPOSURE DURING PREGNANCY [None]
